FAERS Safety Report 9107231 (Version 1)
Quarter: 2013Q1

REPORT INFORMATION
  Report Type: Other
  Country: IT (occurrence: IT)
  Receive Date: 20130221
  Receipt Date: 20130221
  Transmission Date: 20140127
  Serious: Yes (Hospitalization, Other)
  Sender: FDA-Public Use
  Company Number: IT-RB-048044-12

PATIENT
  Age: 30 Year
  Sex: Female

DRUGS (2)
  1. BUPRENORPHINE [Suspect]
     Route: 065
  2. BUPRENORPHINE [Suspect]
     Indication: DRUG DEPENDENCE
     Dosage: BEGAN AT 3RD MONTH OF PREGNANCY
     Route: 065

REACTIONS (5)
  - Premature delivery [Recovered/Resolved]
  - Threatened labour [Recovered/Resolved]
  - Foetal distress syndrome [Recovered/Resolved]
  - Bradycardia foetal [Recovered/Resolved]
  - Exposure during pregnancy [Recovered/Resolved]
